FAERS Safety Report 5501057-7 (Version None)
Quarter: 2007Q4

REPORT INFORMATION
  Report Type: 
  Country: None (occurrence: None)
  Receive Date: 20071029
  Receipt Date: 20071002
  Transmission Date: 20080405
  Serious: Yes (Other)
  Sender: FDA-Public Use
  Company Number: US-PFIZER INC-2007065096

PATIENT
  Sex: Male
  Weight: 54.4 kg

DRUGS (5)
  1. XALATAN [Suspect]
     Indication: INTRAOCULAR PRESSURE INCREASED
     Route: 031
  2. CLORAZEPATE DIPOTASSIUM [Concomitant]
     Route: 048
  3. ASPIRIN [Concomitant]
     Route: 048
  4. ALL OTHER THERAPEUTIC PRODUCTS [Concomitant]
     Indication: PROSTATE EXAMINATION ABNORMAL
     Route: 048
  5. TYLENOL (CAPLET) [Concomitant]
     Route: 048

REACTIONS (4)
  - CATARACT [None]
  - OPEN ANGLE GLAUCOMA [None]
  - RETINAL DISORDER [None]
  - VISUAL DISTURBANCE [None]
